FAERS Safety Report 8504904 (Version 4)
Quarter: 2012Q4

REPORT INFORMATION
  Report Type: 
  Country: JP (occurrence: JP)
  Receive Date: 20120411
  Receipt Date: 20121011
  Transmission Date: 20130627
  Serious: Yes (Life-Threatening, Other)
  Sender: FDA-Public Use
  Company Number: PHHY2012JP027398

PATIENT
  Age: 30 Year
  Sex: Female

DRUGS (4)
  1. IMATINIB [Suspect]
     Indication: CHRONIC MYELOID LEUKAEMIA
     Dosage: 600 mg, UNK
     Route: 048
     Dates: start: 2009
  2. NEORAL [Suspect]
     Indication: STEM CELL TRANSPLANT
     Dosage: 80 mg, every two weeks
     Route: 048
     Dates: start: 200810
  3. NEORAL [Suspect]
     Dosage: 30 mg, every two weeks
     Route: 048
  4. NEORAL [Suspect]
     Dosage: 10 mg, every two weeks
     Route: 048

REACTIONS (5)
  - Chronic myeloid leukaemia [Recovered/Resolved]
  - Neoplasm recurrence [Recovered/Resolved]
  - Bone marrow failure [Recovered/Resolved]
  - Pancytopenia [Recovered/Resolved]
  - Graft versus host disease in skin [Recovered/Resolved]
